FAERS Safety Report 4861153-4 (Version None)
Quarter: 2005Q4

REPORT INFORMATION
  Report Type: 
  Country: None (occurrence: None)
  Receive Date: 20051216
  Receipt Date: 20051129
  Transmission Date: 20060501
  Serious: Yes (Other)
  Sender: FDA-Public Use
  Company Number: US200511003348

PATIENT
  Age: 45 Year
  Sex: Female

DRUGS (1)
  1. FORTEO [Suspect]
     Indication: STRESS FRACTURE

REACTIONS (2)
  - DISEASE RECURRENCE [None]
  - STRESS FRACTURE [None]
